FAERS Safety Report 11381478 (Version 2)
Quarter: 2015Q3

REPORT INFORMATION
  Report Type: Spontaneous
  Country: US (occurrence: US)
  Receive Date: 20150814
  Receipt Date: 20150820
  Transmission Date: 20151125
  Serious: Yes (Hospitalization)
  Sender: FDA-Public Use
  Company Number: US-BAXTER-2015BAX044701

PATIENT
  Sex: Female

DRUGS (1)
  1. DIANEAL LOW CALCIUM PERITONEAL DIALYSIS SOLUTION WITH DEXTROSE [Suspect]
     Active Substance: CALCIUM CHLORIDE\DEXTROSE\MAGNESIUM CHLORIDE\SODIUM CHLORIDE\SODIUM LACTATE
     Indication: CHRONIC KIDNEY DISEASE
     Dosage: AS NEEDED
     Route: 033
     Dates: end: 20150805

REACTIONS (5)
  - Localised infection [Recovering/Resolving]
  - Peritoneal dialysis complication [Recovering/Resolving]
  - Skin ulcer [Recovering/Resolving]
  - Unevaluable event [Recovering/Resolving]
  - Pituitary tumour benign [Recovering/Resolving]

NARRATIVE: CASE EVENT DATE: 20150803
